FAERS Safety Report 24982148 (Version 1)
Quarter: 2025Q1

REPORT INFORMATION
  Report Type: Spontaneous
  Country: US (occurrence: None)
  Receive Date: 20250216
  Receipt Date: 20250216
  Transmission Date: 20250408
  Serious: Yes (Other)
  Sender: FDA-CTU
  Company Number: None

PATIENT
  Age: 50 Year
  Sex: Male
  Weight: 72.9 kg

DRUGS (1)
  1. LISINOPRIL [Suspect]
     Active Substance: LISINOPRIL
     Indication: Hypertension
     Route: 048

REACTIONS (4)
  - Anaphylactic reaction [None]
  - Swelling face [None]
  - Mouth swelling [None]
  - Pharyngeal swelling [None]

NARRATIVE: CASE EVENT DATE: 20241210
